FAERS Safety Report 20751433 (Version 3)
Quarter: 2024Q1

REPORT INFORMATION
  Report Type: Spontaneous
  Country: US (occurrence: US)
  Receive Date: 20220426
  Receipt Date: 20240215
  Transmission Date: 20240410
  Serious: No
  Sender: FDA-Public Use
  Company Number: US-PFIZER INC-202200334626

PATIENT
  Age: 79 Year
  Sex: Female

DRUGS (2)
  1. IBRANCE [Suspect]
     Active Substance: PALBOCICLIB
     Dosage: 125 MG
     Dates: start: 20210730
  2. IBRANCE [Suspect]
     Active Substance: PALBOCICLIB
     Dosage: 7 DAYS OFF

REACTIONS (1)
  - Gastrointestinal motility disorder [Not Recovered/Not Resolved]
